FAERS Safety Report 5808747-7 (Version None)
Quarter: 2008Q3

REPORT INFORMATION
  Report Type: 
  Country: None (occurrence: None)
  Receive Date: 20080714
  Receipt Date: 20080710
  Transmission Date: 20090109
  Serious: Yes (Other)
  Sender: FDA-Public Use
  Company Number: A0692591A

PATIENT
  Sex: Female

DRUGS (1)
  1. ALLI [Suspect]
     Indication: DRUG USE FOR UNKNOWN INDICATION
     Dates: start: 20070801

REACTIONS (9)
  - ADVERSE EVENT [None]
  - ARTHROPATHY [None]
  - DECREASED ACTIVITY [None]
  - GAIT DISTURBANCE [None]
  - MUSCULOSKELETAL DISCOMFORT [None]
  - PULMONARY THROMBOSIS [None]
  - THROMBOSIS [None]
  - WEIGHT FLUCTUATION [None]
  - WEIGHT INCREASED [None]
